FAERS Safety Report 24585322 (Version 1)
Quarter: 2024Q4

REPORT INFORMATION
  Report Type: Spontaneous
  Country: FR (occurrence: FR)
  Receive Date: 20241106
  Receipt Date: 20241106
  Transmission Date: 20250114
  Serious: Yes (Hospitalization)
  Sender: MYLAN
  Company Number: None

PATIENT
  Age: 37 Year
  Sex: Male
  Weight: 69 kg

DRUGS (2)
  1. CLOZAPINE [Suspect]
     Active Substance: CLOZAPINE
     Indication: Schizophrenia
     Dosage: 350 MILLIGRAM, QD
     Route: 065
     Dates: start: 20240905, end: 20240909
  2. CLOZAPINE [Suspect]
     Active Substance: CLOZAPINE
     Dosage: 300 MILLIGRAM, QD
     Route: 065
     Dates: start: 20240910

REACTIONS (1)
  - Tonic convulsion [Recovered/Resolved]

NARRATIVE: CASE EVENT DATE: 20240909
